FAERS Safety Report 12041334 (Version 2)
Quarter: 2016Q2

REPORT INFORMATION
  Report Type: Spontaneous
  Country: US (occurrence: US)
  Receive Date: 20160208
  Receipt Date: 20160531
  Transmission Date: 20160815
  Serious: Yes (Hospitalization, Other)
  Sender: FDA-Public Use
  Company Number: US-PFIZER INC-2016070275

PATIENT
  Sex: Male

DRUGS (3)
  1. ANDRODERM [Suspect]
     Active Substance: TESTOSTERONE
     Indication: HORMONE REPLACEMENT THERAPY
     Dosage: UNK, DAILY
     Dates: start: 2004
  2. ANDROGEL [Suspect]
     Active Substance: TESTOSTERONE
     Indication: HORMONE REPLACEMENT THERAPY
     Dosage: UNK, DAILY
     Dates: start: 2010, end: 2014
  3. DEPO-TESTOSTERONE [Suspect]
     Active Substance: TESTOSTERONE CYPIONATE
     Indication: HORMONE REPLACEMENT THERAPY
     Dosage: UNK, BI-WEEKLY
     Dates: start: 2007, end: 2014

REACTIONS (14)
  - Myocardial infarction [Unknown]
  - Angina pectoris [Unknown]
  - Heart rate irregular [Unknown]
  - Gynaecomastia [Not Recovered/Not Resolved]
  - Loss of libido [Unknown]
  - Mood altered [Unknown]
  - Anger [Unknown]
  - Lethargy [Not Recovered/Not Resolved]
  - Weight fluctuation [Not Recovered/Not Resolved]
  - Hypertension [Unknown]
  - Depression [Not Recovered/Not Resolved]
  - Coronary artery disease [Unknown]
  - Renal failure [Not Recovered/Not Resolved]
  - Social avoidant behaviour [Unknown]

NARRATIVE: CASE EVENT DATE: 2004
